FAERS Safety Report 23744579 (Version 1)
Quarter: 2024Q2

REPORT INFORMATION
  Report Type: Spontaneous
  Country: CA (occurrence: CA)
  Receive Date: 20240415
  Receipt Date: 20240415
  Transmission Date: 20240716
  Serious: Yes (Life-Threatening, Hospitalization)
  Sender: FDA-Public Use
  Company Number: CA-TEVA-VS-3182012

PATIENT
  Age: 2 Year
  Sex: Female
  Weight: 10 kg

DRUGS (4)
  1. VINCRISTINE SULFATE [Suspect]
     Active Substance: VINCRISTINE SULFATE
     Indication: Chemotherapy
     Route: 065
  2. ASPARAGINASE ERWINIA CHRYSANTHEMI [Suspect]
     Active Substance: ASPARAGINASE ERWINIA CHRYSANTHEMI
     Indication: Chemotherapy
     Route: 065
  3. CYTARABINE [Suspect]
     Active Substance: CYTARABINE
     Indication: Chemotherapy
     Route: 065
  4. ONCASPAR [Suspect]
     Active Substance: PEGASPARGASE
     Indication: Chemotherapy
     Dosage: DOSE FORM: SOLUTION INTRAMUSCULAR, ONCASPAR 3750 UNITS / 5 ML. SINGLE USE VIAL
     Route: 065

REACTIONS (1)
  - Febrile neutropenia [Recovering/Resolving]
